FAERS Safety Report 14250723 (Version 5)
Quarter: 2018Q2

REPORT INFORMATION
  Report Type: Spontaneous
  Country: US (occurrence: US)
  Receive Date: 20171205
  Receipt Date: 20180511
  Transmission Date: 20180711
  Serious: Yes (Other)
  Sender: FDA-Public Use
  Company Number: US-PFIZER INC-2017514238

PATIENT
  Age: 76 Year
  Sex: Female
  Weight: 86 kg

DRUGS (4)
  1. IBRANCE [Suspect]
     Active Substance: PALBOCICLIB
     Indication: BREAST CANCER METASTATIC
     Dosage: 125 MG, CYCLIC (ONE CAPSULE ONCE A DAY, 3 WEEKS ON AND OFF ONE WEEK)
     Dates: start: 201710, end: 2017
  2. IBRANCE [Suspect]
     Active Substance: PALBOCICLIB
     Dosage: UNK
  3. IBRANCE [Suspect]
     Active Substance: PALBOCICLIB
     Dosage: 100 MG
  4. EXEMESTANE. [Concomitant]
     Active Substance: EXEMESTANE
     Indication: ANTIOESTROGEN THERAPY
     Dosage: 25 MG, DAILY

REACTIONS (16)
  - Dry skin [Recovered/Resolved]
  - White blood cell count decreased [Not Recovered/Not Resolved]
  - Body height decreased [Recovered/Resolved]
  - Haemoglobin decreased [Unknown]
  - Carbohydrate antigen 15-3 increased [Unknown]
  - Lymphocyte count decreased [Unknown]
  - Pain of skin [Not Recovered/Not Resolved]
  - Neutropenia [Unknown]
  - Red cell distribution width increased [Unknown]
  - Blood creatinine increased [Unknown]
  - Neutrophil count decreased [Unknown]
  - Urticaria [Not Recovered/Not Resolved]
  - Mean cell volume increased [Unknown]
  - Alopecia [Not Recovered/Not Resolved]
  - Red blood cell count decreased [Unknown]
  - Haematocrit decreased [Unknown]

NARRATIVE: CASE EVENT DATE: 2017
